FAERS Safety Report 7417551-8 (Version None)
Quarter: 2011Q2

REPORT INFORMATION
  Report Type: 
  Country: None (occurrence: None)
  Receive Date: 20110415
  Receipt Date: 20110406
  Transmission Date: 20111010
  Serious: Yes (Other)
  Sender: FDA-Public Use
  Company Number: US-MYLANLABS-2010S1019678

PATIENT
  Age: 32 Year
  Sex: Female

DRUGS (2)
  1. AMNESTEEM [Suspect]
     Dates: start: 20100329
  2. CLARAVIS [Suspect]
     Dates: end: 20100810

REACTIONS (1)
  - DRUG EXPOSURE BEFORE PREGNANCY [None]
